FAERS Safety Report 26115551 (Version 1)
Quarter: 2025Q4

REPORT INFORMATION
  Report Type: Report from Study
  Country: IN (occurrence: IN)
  Receive Date: 20251203
  Receipt Date: 20251203
  Transmission Date: 20260118
  Serious: Yes (Other)
  Sender: ROCHE
  Company Number: IN-002147023-NVSC2025IN108234

PATIENT
  Age: 83 Year
  Sex: Male

DRUGS (1)
  1. RANIBIZUMAB [Suspect]
     Active Substance: RANIBIZUMAB
     Indication: Retinal vein occlusion
     Dosage: UNK
     Route: 050
     Dates: start: 20250220

REACTIONS (4)
  - Retinal haemorrhage [Unknown]
  - Eye disorder [Unknown]
  - Pyrexia [Unknown]
  - Speech disorder [Unknown]
